FAERS Safety Report 7499110-4 (Version None)
Quarter: 2011Q2

REPORT INFORMATION
  Report Type: 
  Country: None (occurrence: None)
  Receive Date: 20110524
  Receipt Date: 20110217
  Transmission Date: 20111010
  Serious: No
  Sender: FDA-Public Use
  Company Number: US-NOVEN-11US001820

PATIENT
  Sex: Female

DRUGS (2)
  1. DAYTRANA [Suspect]
     Indication: ATTENTION DEFICIT/HYPERACTIVITY DISORDER
     Dosage: 15 MG, QD X 9 HRS
     Route: 062
     Dates: start: 20110101, end: 20110201
  2. PREVACID [Concomitant]
     Indication: REFLUX OESOPHAGITIS
     Route: 048

REACTIONS (2)
  - DERMATITIS ALLERGIC [None]
  - URTICARIA [None]
